FAERS Safety Report 11494363 (Version 1)
Quarter: 2015Q3

REPORT INFORMATION
  Report Type: Spontaneous
  Country: US (occurrence: None)
  Receive Date: 20150910
  Receipt Date: 20150910
  Transmission Date: 20151125
  Serious: Yes (Other)
  Sender: FDA-Public Use
  Company Number: None

PATIENT
  Age: 31 Year
  Sex: Female
  Weight: 65.32 kg

DRUGS (8)
  1. WELLBUTRIN [Concomitant]
     Active Substance: BUPROPION HYDROCHLORIDE
  2. VALIUM [Concomitant]
     Active Substance: DIAZEPAM
  3. COMPLERA [Concomitant]
     Active Substance: EMTRICITABINE\RILPIVIRINE HYDROCHLORIDE\TENOFOVIR DISOPROXIL FUMARATE
  4. AMBIEN [Concomitant]
     Active Substance: ZOLPIDEM TARTRATE
  5. MULTIVITAMINS [Concomitant]
     Active Substance: VITAMINS
  6. RITALIN [Concomitant]
     Active Substance: METHYLPHENIDATE HYDROCHLORIDE
  7. VIIBRYD [Suspect]
     Active Substance: VILAZODONE HYDROCHLORIDE
     Indication: DEPRESSION
     Dosage: 1 PILL
     Route: 048
     Dates: start: 20110207, end: 20150909
  8. BIOTIN [Concomitant]
     Active Substance: BIOTIN

REACTIONS (13)
  - Headache [None]
  - Paraesthesia [None]
  - Impaired work ability [None]
  - Suicidal ideation [None]
  - Aggression [None]
  - Fatigue [None]
  - Dizziness [None]
  - Nausea [None]
  - Pain [None]
  - Drug ineffective [None]
  - Pruritus [None]
  - Nightmare [None]
  - Depression [None]

NARRATIVE: CASE EVENT DATE: 20150909
